FAERS Safety Report 15020743 (Version 2)
Quarter: 2018Q2

REPORT INFORMATION
  Report Type: Spontaneous
  Country: US (occurrence: US)
  Receive Date: 20180618
  Receipt Date: 20180619
  Transmission Date: 20180711
  Serious: Yes (Death, Hospitalization)
  Sender: FDA-Public Use
  Company Number: US-JNJFOC-20180607907

PATIENT
  Sex: Female

DRUGS (2)
  1. TYLENOL [Suspect]
     Active Substance: ACETAMINOPHEN
     Route: 065
  2. TYLENOL [Suspect]
     Active Substance: ACETAMINOPHEN
     Indication: INFLUENZA
     Route: 065

REACTIONS (6)
  - Loss of consciousness [Unknown]
  - Accidental overdose [Fatal]
  - Coma [Unknown]
  - Product use in unapproved indication [Unknown]
  - Liver injury [Fatal]
  - Multiple organ dysfunction syndrome [Unknown]
